FAERS Safety Report 5131173-3 (Version None)
Quarter: 2006Q4

REPORT INFORMATION
  Report Type: 
  Country: None (occurrence: None)
  Receive Date: 20061020
  Receipt Date: 20060919
  Transmission Date: 20070319
  Serious: Yes (Disabling)
  Sender: FDA-Public Use
  Company Number: CA-SP-2006-02465

PATIENT
  Age: 72 Year
  Sex: Female

DRUGS (2)
  1. IMMUCYST [Suspect]
     Indication: BLADDER CANCER
     Route: 043
     Dates: start: 20060908, end: 20061013
  2. IMMUCYST [Suspect]
     Route: 043
     Dates: start: 20060908, end: 20061013

REACTIONS (8)
  - ARTHRALGIA [None]
  - FATIGUE [None]
  - FLANK PAIN [None]
  - GAIT DISTURBANCE [None]
  - IMMOBILE [None]
  - INCORRECT DOSE ADMINISTERED [None]
  - LETHARGY [None]
  - MUSCULOSKELETAL STIFFNESS [None]
